FAERS Safety Report 7864940-3 (Version None)
Quarter: 2011Q4

REPORT INFORMATION
  Report Type: 
  Country: None (occurrence: None)
  Receive Date: 20111028
  Receipt Date: 20100922
  Transmission Date: 20120403
  Serious: No
  Sender: FDA-Public Use
  Company Number: US-GLAXOSMITHKLINE-A0882655A

PATIENT
  Sex: Female

DRUGS (5)
  1. LISINOPRIL [Concomitant]
  2. TERBUTALINE [Concomitant]
  3. OMEPRAZOLE [Concomitant]
  4. ADVAIR DISKUS 100/50 [Suspect]
     Indication: ASTHMA
     Dosage: 1PUFF TWICE PER DAY
     Route: 055
  5. CETIRIZINE HCL [Concomitant]

REACTIONS (8)
  - ARTHRALGIA [None]
  - ANGER [None]
  - SENSATION OF PRESSURE [None]
  - RASH [None]
  - MUSCLE SPASMS [None]
  - PHARYNGITIS [None]
  - NERVOUSNESS [None]
  - SWELLING [None]
